FAERS Safety Report 4777960-2 (Version None)
Quarter: 2005Q3

REPORT INFORMATION
  Report Type: 
  Country: None (occurrence: None)
  Receive Date: 20050921
  Receipt Date: 20050913
  Transmission Date: 20060218
  Serious: Yes (Life-Threatening)
  Sender: FDA-Public Use
  Company Number: 2005JP001689

PATIENT
  Age: 65 Year
  Sex: Female

DRUGS (17)
  1. TACROLIMUS CAPSULES (TACROLIMUS CAPSULES) CAPSULES [Suspect]
     Indication: RHEUMATOID ARTHRITIS
     Dosage: 2.00 MG, D, ORAL
     Route: 048
     Dates: end: 20050805
  2. RHEUMATREX [Suspect]
     Indication: RHEUMATOID ARTHRITIS
     Dosage: 8.00 MG, WEEKLY, ORAL
     Route: 048
     Dates: end: 20050901
  3. PREDNISOLONE [Suspect]
     Indication: RHEUMATOID ARTHRITIS
     Dosage: SEE IMAGE, ORAL
     Route: 048
     Dates: start: 20050902
  4. BAKTAR (SULFAMETHOXAZOLE, TRIMETHOPRIM) TABLET [Suspect]
     Indication: PROPHYLAXIS
     Dosage: BID, ORAL
     Route: 048
  5. MINOCYCLINE HCL [Suspect]
     Indication: ORAL INFECTION
     Dosage: SEE IMAGE
     Dates: start: 20050824, end: 20050901
  6. MINOCYCLINE HCL [Suspect]
     Indication: ORAL INFECTION
     Dosage: SEE IMAGE
     Dates: start: 20050909
  7. SPIRONOLACTONE TABLET [Concomitant]
  8. ISCOTIN (ISONIAZID) TABLET [Concomitant]
  9. OMEPRAZOLE [Concomitant]
  10. ACTONEL [Concomitant]
  11. FUROSEMIDE [Concomitant]
  12. GASMOTIN (MOSAPRIDE CITRATE) TABLET [Concomitant]
  13. BI LOVE (RIBOFLAVIN TETRABUTYRATE) TABLET [Concomitant]
  14. WARFARIN (WARFARIN) TABLET [Concomitant]
  15. KAMAG G (MAGNESIUM OXIDE) [Concomitant]
  16. MOHRUS (KETOPROFEN) TAPE [Concomitant]
  17. VOLTAREN [Concomitant]

REACTIONS (6)
  - ANOREXIA [None]
  - DISSEMINATED INTRAVASCULAR COAGULATION [None]
  - ORAL INFECTION [None]
  - PANCYTOPENIA [None]
  - STAPHYLOCOCCAL INFECTION [None]
  - STOMATITIS [None]
